FAERS Safety Report 19804212 (Version 1)
Quarter: 2021Q3

REPORT INFORMATION
  Report Type: Spontaneous
  Country: US (occurrence: US)
  Receive Date: 20210908
  Receipt Date: 20210908
  Transmission Date: 20211014
  Serious: No
  Sender: FDA-Public Use
  Company Number: US-FARMAPROD-202012-1683

PATIENT
  Sex: Male

DRUGS (12)
  1. MIRTAZAPINE. [Concomitant]
     Active Substance: MIRTAZAPINE
  2. OXERVATE [Suspect]
     Active Substance: CENEGERMIN-BKBJ
     Route: 047
     Dates: start: 20201118
  3. MYRBETRIQ [Concomitant]
     Active Substance: MIRABEGRON
     Dosage: DELAYED RELEASE TABLET
  4. CARVEDIOL [Concomitant]
     Active Substance: CARVEDILOL
  5. FINASTERIDE. [Concomitant]
     Active Substance: FINASTERIDE
  6. ASPIRINE [Concomitant]
     Active Substance: ASPIRIN
  7. TRAVOPROST. [Concomitant]
     Active Substance: TRAVOPROST
  8. SPIRIVA RESPIMAT [Concomitant]
     Active Substance: TIOTROPIUM BROMIDE
  9. CLOPIDOGREL [Concomitant]
     Active Substance: CLOPIDOGREL BISULFATE
  10. TAMSULOSIN [Concomitant]
     Active Substance: TAMSULOSIN
  11. AMLODIPINE BESYLATE. [Concomitant]
     Active Substance: AMLODIPINE BESYLATE
  12. SIMVASTATIN. [Concomitant]
     Active Substance: SIMVASTATIN

REACTIONS (3)
  - Eye pain [Unknown]
  - Dizziness [Unknown]
  - Dehydration [Unknown]
